FAERS Safety Report 9165444 (Version 1)
Quarter: 2013Q1

REPORT INFORMATION
  Report Type: Spontaneous
  Country: DE (occurrence: None)
  Receive Date: 20130228
  Receipt Date: 20130228
  Transmission Date: 20140127
  Serious: Yes (Hospitalization, Other)
  Sender: FDA-Public Use
  Company Number: 2013P1002447

PATIENT
  Age: 30 Year
  Sex: Female

DRUGS (1)
  1. OXYCODONE [Suspect]
     Route: 058

REACTIONS (3)
  - Drug dependence [None]
  - Drug withdrawal syndrome [None]
  - Respiratory depression [None]
